FAERS Safety Report 5106250-3 (Version None)
Quarter: 2006Q3

REPORT INFORMATION
  Report Type: 
  Country: None (occurrence: None)
  Receive Date: 20060918
  Receipt Date: 20060912
  Transmission Date: 20061208
  Serious: Yes (Hospitalization, Other)
  Sender: FDA-Public Use
  Company Number: PHBS2006ES13807

PATIENT
  Age: 74 Year
  Sex: Male

DRUGS (3)
  1. CO-VALS [Suspect]
     Dosage: VALS 80 / HCT 12.5 MG/DAY
     Dates: end: 20060629
  2. RONAME [Concomitant]
     Dosage: 1 MG, UNK
     Dates: end: 20060629
  3. DIANBEN [Concomitant]

REACTIONS (5)
  - BLOOD CREATININE INCREASED [None]
  - BLOOD SODIUM DECREASED [None]
  - HYPONATRAEMIA [None]
  - INAPPROPRIATE ANTIDIURETIC HORMONE SECRETION [None]
  - RENAL FAILURE ACUTE [None]
